FAERS Safety Report 5034550-4 (Version None)
Quarter: 2006Q2

REPORT INFORMATION
  Report Type: 
  Country: None (occurrence: None)
  Receive Date: 20060621
  Receipt Date: 20060206
  Transmission Date: 20061013
  Serious: Yes (Other)
  Sender: FDA-Public Use
  Company Number: CIP06001380

PATIENT
  Age: 66 Year
  Sex: Female
  Weight: 61.2 kg

DRUGS (3)
  1. ACTONEL [Suspect]
     Indication: OSTEOPOROSIS
     Dosage: 35 MG ONCE WEEKLY
     Dates: start: 20000101, end: 20060101
  2. CALCIUM W/VITAMIN D NOS (VITAMIN D NOS, CALCIUM) [Concomitant]
  3. MULTIVIT (VITAMINS NOS) [Concomitant]

REACTIONS (2)
  - JAW DISORDER [None]
  - RESORPTION BONE INCREASED [None]
